FAERS Safety Report 10020757 (Version 1)
Quarter: 2014Q1

REPORT INFORMATION
  Report Type: Spontaneous
  Country: GB (occurrence: GB)
  Receive Date: 20140319
  Receipt Date: 20140319
  Transmission Date: 20141002
  Serious: Yes (Other)
  Sender: FDA-Public Use
  Company Number: GB-ACCORD-022491

PATIENT
  Age: 48 Year
  Sex: Male

DRUGS (8)
  1. CLOPIDOGREL [Suspect]
     Indication: PRODUCT USED FOR UNKNOWN INDICATION
     Route: 048
  2. FLUOXETINE [Suspect]
     Indication: PRODUCT USED FOR UNKNOWN INDICATION
     Route: 048
  3. LOSARTAN [Concomitant]
  4. ATORVASTATIN [Concomitant]
  5. BISOPROLOL [Concomitant]
  6. LANSOPRAZOLE [Concomitant]
  7. ASPIRIN [Suspect]
     Indication: PRODUCT USED FOR UNKNOWN INDICATION
     Dosage: COMMENCED PRIOR TO APRIL 2013.
     Route: 048
  8. CHAMPIX [Suspect]
     Indication: PRODUCT USED FOR UNKNOWN INDICATION
     Dosage: TITRATION PACK
     Route: 048

REACTIONS (4)
  - Pyrexia [Unknown]
  - Myalgia [Unknown]
  - Haematuria [Unknown]
  - Urinary tract infection [Unknown]
